FAERS Safety Report 5988429-1 (Version None)
Quarter: 2008Q4

REPORT INFORMATION
  Report Type: 
  Country: None (occurrence: None)
  Receive Date: 20081210
  Receipt Date: 20081128
  Transmission Date: 20090506
  Serious: Yes (Other)
  Sender: FDA-Public Use
  Company Number: JP-BRISTOL-MYERS SQUIBB COMPANY-14433460

PATIENT
  Age: 72 Year
  Sex: Male

DRUGS (5)
  1. ERBITUX [Suspect]
     Indication: RECTAL CANCER
     Dosage: FORM = INJ
     Route: 042
     Dates: start: 20081120, end: 20081120
  2. CAMPTOSAR [Concomitant]
     Indication: RECTAL CANCER
     Dosage: FORM = INJ
     Route: 042
  3. DECADRON [Concomitant]
     Indication: PREMEDICATION
     Dosage: FORM = INJ
     Route: 042
  4. KYTRIL [Concomitant]
     Indication: PREMEDICATION
     Dosage: FORM = INJ
     Route: 042
  5. POLARAMINE [Concomitant]
     Indication: PREMEDICATION
     Dosage: FORM = INJ. 1 DOSAGEFORM = 0.5% 1 ML 1 AMPOULE
     Route: 042

REACTIONS (1)
  - LOSS OF CONSCIOUSNESS [None]
